FAERS Safety Report 9714997 (Version 1)
Quarter: 2013Q4

REPORT INFORMATION
  Report Type: Spontaneous
  Country: US (occurrence: US)
  Receive Date: 20131126
  Receipt Date: 20131126
  Transmission Date: 20140711
  Serious: No
  Sender: FDA-Public Use
  Company Number: US-NOVEN-13US007637

PATIENT
  Age: 42 Year
  Sex: Female

DRUGS (1)
  1. MINIVELLE [Suspect]
     Indication: IN VITRO FERTILISATION
     Dosage: 0.1 MG, X4 TWICE A WEEK
     Route: 062

REACTIONS (4)
  - Off label use [Not Recovered/Not Resolved]
  - Wrong technique in drug usage process [Not Recovered/Not Resolved]
  - Drug prescribing error [Not Recovered/Not Resolved]
  - No adverse event [Not Recovered/Not Resolved]
